FAERS Safety Report 13417540 (Version 3)
Quarter: 2017Q2

REPORT INFORMATION
  Report Type: Spontaneous
  Country: JP (occurrence: JP)
  Receive Date: 20170407
  Receipt Date: 20170629
  Transmission Date: 20170830
  Serious: Yes (Hospitalization, Other)
  Sender: FDA-Public Use
  Company Number: JP-PFIZER INC-2017100316

PATIENT
  Age: 80 Year
  Sex: Female

DRUGS (4)
  1. CELECOX [Suspect]
     Active Substance: CELECOXIB
     Dosage: UNK
  2. METHOTREXATE SODIUM. [Suspect]
     Active Substance: METHOTREXATE SODIUM
     Dosage: 4 DF, WEEKLY
     Dates: start: 201109
  3. LYRICA [Concomitant]
     Active Substance: PREGABALIN
     Indication: PAIN
     Dosage: UNK
  4. ENBREL [Suspect]
     Active Substance: ETANERCEPT
     Indication: RHEUMATOID ARTHRITIS
     Dosage: 25 MG, 2X/WEEK
     Route: 058
     Dates: start: 201109

REACTIONS (12)
  - Cough [Unknown]
  - Chills [Unknown]
  - Fatigue [Unknown]
  - Pneumonia [Recovered/Resolved]
  - Oropharyngeal pain [Unknown]
  - Seizure [Unknown]
  - Rhinorrhoea [Unknown]
  - Gastric ulcer [Recovered/Resolved with Sequelae]
  - Anaemia [Recovered/Resolved with Sequelae]
  - Viral upper respiratory tract infection [Unknown]
  - Generalised oedema [Recovered/Resolved with Sequelae]
  - Heat illness [Recovered/Resolved]

NARRATIVE: CASE EVENT DATE: 2016
